FAERS Safety Report 12590118 (Version 2)
Quarter: 2016Q3

REPORT INFORMATION
  Report Type: Spontaneous
  Country: US (occurrence: US)
  Receive Date: 20160725
  Receipt Date: 20160902
  Transmission Date: 20161109
  Serious: No
  Sender: FDA-Public Use
  Company Number: US-GLAXOSMITHKLINE-US2016106808

PATIENT
  Age: 80 Year
  Sex: Female

DRUGS (5)
  1. BREO ELLIPTA [Suspect]
     Active Substance: FLUTICASONE FUROATE\VILANTEROL TRIFENATATE
     Indication: ASTHMA
     Dosage: 1 PUFF(S), 1D
     Route: 055
     Dates: start: 20160711
  2. ALBUTEROL. [Concomitant]
     Active Substance: ALBUTEROL
  3. ZOLOFT [Concomitant]
     Active Substance: SERTRALINE HYDROCHLORIDE
  4. BREO ELLIPTA [Suspect]
     Active Substance: FLUTICASONE FUROATE\VILANTEROL TRIFENATATE
     Indication: MYCOBACTERIUM AVIUM COMPLEX INFECTION
  5. BREO ELLIPTA [Suspect]
     Active Substance: FLUTICASONE FUROATE\VILANTEROL TRIFENATATE
     Indication: WHEEZING

REACTIONS (12)
  - Energy increased [Unknown]
  - Flatulence [Unknown]
  - Rhinorrhoea [Unknown]
  - Heart sounds [Recovered/Resolved]
  - Therapeutic response unexpected [Unknown]
  - Diarrhoea [Unknown]
  - Frequent bowel movements [Unknown]
  - Overdose [Recovered/Resolved]
  - Erythema [Recovered/Resolved]
  - Cough [Unknown]
  - Lower respiratory tract congestion [Unknown]
  - Gastric disorder [Unknown]

NARRATIVE: CASE EVENT DATE: 201607
